FAERS Safety Report 5858622-7 (Version None)
Quarter: 2008Q3

REPORT INFORMATION
  Report Type: 
  Country: None (occurrence: None)
  Receive Date: 20080826
  Receipt Date: 20080814
  Transmission Date: 20090109
  Serious: Yes (Other)
  Sender: FDA-Public Use
  Company Number: JP-PFIZER INC-2008070411

PATIENT
  Age: 77 Year
  Sex: Female

DRUGS (10)
  1. IDARUBICIN HCL [Suspect]
     Indication: ACUTE MONOCYTIC LEUKAEMIA
  2. FLUCONAZOLE [Suspect]
     Indication: FEBRILE NEUTROPENIA
  3. CYTARABINE [Suspect]
     Indication: ACUTE MONOCYTIC LEUKAEMIA
  4. PREDNISOLONE [Suspect]
     Indication: DRUG RASH WITH EOSINOPHILIA AND SYSTEMIC SYMPTOMS
     Dosage: DAILY DOSE:.75MG/KG
  5. CIPROFLOXACIN [Suspect]
     Indication: FEBRILE NEUTROPENIA
  6. ALLOPURINOL [Suspect]
     Indication: PROPHYLAXIS
  7. TOSUFLOXACIN [Suspect]
     Indication: FEBRILE NEUTROPENIA
  8. MEROPENEM [Suspect]
     Indication: FEBRILE NEUTROPENIA
  9. VANCOMYCIN HYDROCHLORIDE [Suspect]
     Indication: FEBRILE NEUTROPENIA
  10. MICAFUNGIN [Suspect]
     Indication: FEBRILE NEUTROPENIA

REACTIONS (4)
  - DRUG RASH WITH EOSINOPHILIA AND SYSTEMIC SYMPTOMS [None]
  - FEBRILE NEUTROPENIA [None]
  - HEPATIC FUNCTION ABNORMAL [None]
  - HYPOGAMMAGLOBULINAEMIA [None]
